FAERS Safety Report 8996081 (Version 1)
Quarter: 2013Q1

REPORT INFORMATION
  Report Type: Spontaneous
  Country: US (occurrence: US)
  Receive Date: 20130103
  Receipt Date: 20130103
  Transmission Date: 20140127
  Serious: No
  Sender: FDA-Public Use
  Company Number: US-PFIZER INC-2013001618

PATIENT
  Age: 54 Year
  Sex: Male
  Weight: 78.46 kg

DRUGS (4)
  1. CHANTIX [Suspect]
     Indication: SMOKING CESSATION THERAPY
     Dosage: 0.5 MG, 1X/DAY
     Route: 048
     Dates: start: 201212, end: 201212
  2. CHANTIX [Suspect]
     Dosage: 0.5 MG, 2X/DAY
     Route: 048
     Dates: start: 201212, end: 201212
  3. HYDROCODONE [Concomitant]
     Dosage: UNK, 4X/DAY
  4. METFORMIN [Concomitant]
     Dosage: 1000 MG, 2X/DAY

REACTIONS (2)
  - Drug ineffective [Unknown]
  - Drug intolerance [Unknown]
